FAERS Safety Report 9769465 (Version 1)
Quarter: 2013Q4

REPORT INFORMATION
  Report Type: Spontaneous
  Country: US (occurrence: None)
  Receive Date: 20131217
  Receipt Date: 20131217
  Transmission Date: 20140711
  Serious: No
  Sender: FDA-Public Use
  Company Number: None

PATIENT
  Age: 82 Year
  Sex: Female

DRUGS (1)
  1. SUTENT [Suspect]
     Indication: RENAL CANCER
     Dosage: DAILY FOR 3 WEEKS OFF
     Route: 048
     Dates: start: 20130710

REACTIONS (4)
  - Oral pain [None]
  - Pain in extremity [None]
  - Pain in extremity [None]
  - Onychoclasis [None]
